FAERS Safety Report 21877306 (Version 1)
Quarter: 2023Q1

REPORT INFORMATION
  Report Type: Spontaneous
  Country: US (occurrence: None)
  Receive Date: 20230118
  Receipt Date: 20230118
  Transmission Date: 20230418
  Serious: No
  Sender: FDA-Public Use
  Company Number: 2023A008385

PATIENT
  Sex: Female

DRUGS (7)
  1. SEROQUEL [Suspect]
     Active Substance: QUETIAPINE FUMARATE
     Indication: Bipolar disorder
     Route: 048
  2. DALFAMPRIDINE [Suspect]
     Active Substance: DALFAMPRIDINE
  3. OCREVUS [Concomitant]
     Active Substance: OCRELIZUMAB
  4. AMLODIPINE [Concomitant]
     Active Substance: AMLODIPINE BESYLATE
  5. LOSARTAN [Concomitant]
     Active Substance: LOSARTAN
  6. FUROSEMIDE [Concomitant]
     Active Substance: FUROSEMIDE
  7. CLONIDINE [Concomitant]
     Active Substance: CLONIDINE

REACTIONS (7)
  - Hypertension [Recovered/Resolved]
  - Memory impairment [Recovered/Resolved]
  - Constipation [Recovered/Resolved]
  - Gait disturbance [Recovered/Resolved]
  - Multiple sclerosis [Recovered/Resolved]
  - Spinal stenosis [Recovered/Resolved]
  - Abdominal discomfort [Recovered/Resolved]
